FAERS Safety Report 6490478-4 (Version None)
Quarter: 2009Q4

REPORT INFORMATION
  Report Type: 
  Country: None (occurrence: None)
  Receive Date: 20091210
  Receipt Date: 20091210
  Transmission Date: 20100525
  Serious: Yes (Hospitalization)
  Sender: FDA-Public Use
  Company Number: None

PATIENT
  Age: 54 Year
  Sex: Male
  Weight: 148.5 kg

DRUGS (3)
  1. WARFARIN SODIUM [Suspect]
     Indication: DEEP VEIN THROMBOSIS
     Dosage: 6 MG EVERY DAY PO
     Route: 048
     Dates: start: 20081101, end: 20091208
  2. WARFARIN SODIUM [Suspect]
     Indication: PULMONARY EMBOLISM
     Dosage: 6 MG EVERY DAY PO
     Route: 048
     Dates: start: 20081101, end: 20091208
  3. MOXIFLOXACIN HCL [Suspect]
     Indication: POSTOPERATIVE WOUND INFECTION
     Dosage: 400 MG EVERY DAY PO
     Route: 048
     Dates: start: 20091204

REACTIONS (4)
  - DRUG TOXICITY [None]
  - HAEMATOMA [None]
  - HAEMORRHAGE [None]
  - INTERNATIONAL NORMALISED RATIO INCREASED [None]
